FAERS Safety Report 4689221-0 (Version None)
Quarter: 2005Q2

REPORT INFORMATION
  Report Type: 
  Country: None (occurrence: None)
  Receive Date: 20050608
  Receipt Date: 20050308
  Transmission Date: 20051028
  Serious: No
  Sender: FDA-Public Use
  Company Number: 2005-BP-03730BP

PATIENT
  Age: 78 Year
  Sex: Male

DRUGS (25)
  1. SPIRIVA [Suspect]
     Indication: ASTHMA
     Dosage: 18 MCG (18 MCG), IH
     Route: 055
     Dates: start: 20040701, end: 20041101
  2. SPIRIVA [Suspect]
     Indication: WHEEZING
     Dosage: 18 MCG (18 MCG), IH
     Route: 055
     Dates: start: 20040701, end: 20041101
  3. SPIRIVA [Suspect]
     Indication: ASTHMA
     Dosage: 18 MCG (18 MCG), IH
     Route: 055
     Dates: start: 20040701, end: 20041101
  4. SPIRIVA [Suspect]
     Indication: WHEEZING
     Dosage: 18 MCG (18 MCG), IH
     Route: 055
     Dates: start: 20040701, end: 20041101
  5. PREVACID [Concomitant]
  6. ATENOLOL [Concomitant]
  7. ALDOMET [Concomitant]
  8. POTASSIUM ACETATE [Concomitant]
  9. FUROSEMIDE [Concomitant]
  10. LIPITOR [Concomitant]
  11. SINGULAIR (MONTELUKAST) [Concomitant]
  12. PEPCID [Concomitant]
  13. LEVAQUIN [Concomitant]
  14. ZITHROMAX [Concomitant]
  15. DOXYCYCLINE [Concomitant]
  16. MYSTATIN [Concomitant]
  17. CLOTRIMAZOLE TROCHE (CLOTRIMAZOLE) [Concomitant]
  18. PREVACID [Concomitant]
  19. AVANDAMET [Concomitant]
  20. MOBIC [Concomitant]
  21. BENICAR [Concomitant]
  22. MAGNESIUM [Concomitant]
  23. ASPIRIN [Concomitant]
  24. CENTRUM (CENTRUM) [Concomitant]
  25. QUININE SULFATE [Concomitant]

REACTIONS (1)
  - LEUKOPLAKIA ORAL [None]
